FAERS Safety Report 16090700 (Version 1)
Quarter: 2019Q1

REPORT INFORMATION
  Report Type: Report from Study
  Country: MX (occurrence: MX)
  Receive Date: 20190319
  Receipt Date: 20190319
  Transmission Date: 20190418
  Serious: Yes (Death, Hospitalization)
  Sender: FDA-Public Use
  Company Number: MX-CELGENEUS-MEX-20190102762

PATIENT
  Age: 81 Year
  Sex: Male

DRUGS (2)
  1. VIDAZA [Suspect]
     Active Substance: AZACITIDINE
     Dosage: 150 MILLIGRAM (3RD CYCLE)
     Route: 041
     Dates: start: 20190211, end: 20190217
  2. VIDAZA [Suspect]
     Active Substance: AZACITIDINE
     Indication: MYELODYSPLASTIC SYNDROME
     Dosage: 150 MILLIGRAM (2ND CYCLE)
     Route: 041
     Dates: start: 20181119, end: 20181125

REACTIONS (4)
  - Urticaria [Unknown]
  - Pneumonia [Fatal]
  - Infection [Unknown]
  - Herpes zoster [Unknown]

NARRATIVE: CASE EVENT DATE: 201811
